FAERS Safety Report 25411349 (Version 1)
Quarter: 2025Q2

REPORT INFORMATION
  Report Type: Spontaneous
  Country: US (occurrence: US)
  Receive Date: 20250609
  Receipt Date: 20250609
  Transmission Date: 20250717
  Serious: No
  Sender: UROGEN PHARMA
  Company Number: US-UROGEN PHARMA LTD.-2025-UGN-000068

PATIENT

DRUGS (6)
  1. JELMYTO [Suspect]
     Active Substance: MITOMYCIN
     Indication: Ureteric cancer
     Dosage: 15 MILLIGRAM, ONCE A WEEK
     Dates: start: 20250311, end: 20250311
  2. JELMYTO [Suspect]
     Active Substance: MITOMYCIN
     Dosage: 15 MILLIGRAM, ONCE A WEEK
     Dates: start: 20250318, end: 20250318
  3. JELMYTO [Suspect]
     Active Substance: MITOMYCIN
     Dosage: 15 MILLIGRAM, ONCE A WEEK
     Dates: start: 20250325, end: 20250325
  4. JELMYTO [Suspect]
     Active Substance: MITOMYCIN
     Dosage: 15 MILLIGRAM, ONCE A WEEK
     Dates: start: 20250401, end: 20250401
  5. JELMYTO [Suspect]
     Active Substance: MITOMYCIN
     Dosage: 15 MILLIGRAM, ONCE A WEEK
     Dates: start: 20250408, end: 20250408
  6. JELMYTO [Suspect]
     Active Substance: MITOMYCIN
     Dosage: 15 MILLIGRAM, ONCE A WEEK
     Dates: start: 20250415, end: 20250415

REACTIONS (3)
  - Urinary hesitation [Not Recovered/Not Resolved]
  - Chills [Not Recovered/Not Resolved]
  - Asthenia [Not Recovered/Not Resolved]

NARRATIVE: CASE EVENT DATE: 20250415
